FAERS Safety Report 15680067 (Version 2)
Quarter: 2018Q4

REPORT INFORMATION
  Report Type: Spontaneous
  Country: CA (occurrence: CA)
  Receive Date: 20181203
  Receipt Date: 20181227
  Transmission Date: 20190205
  Serious: Yes (Other)
  Sender: FDA-Public Use
  Company Number: CA-ORION CORPORATION ORION PHARMA-TREX2018-3498

PATIENT
  Age: 56 Year
  Sex: Female

DRUGS (15)
  1. METHOTREXATE (TRADE NAME UNKNOWN) [Suspect]
     Active Substance: METHOTREXATE
     Indication: PRODUCT USED FOR UNKNOWN INDICATION
     Dosage: 2.5 TABS X 6
     Route: 048
     Dates: end: 2018
  2. DEPO-MEDROL [Concomitant]
     Active Substance: METHYLPREDNISOLONE ACETATE
     Indication: RHEUMATOID ARTHRITIS
     Dosage: IN TO BUTTOCK ONCE
     Route: 030
     Dates: start: 20180109, end: 20180109
  3. IRON [Concomitant]
     Active Substance: IRON
     Indication: ANAEMIA
     Route: 065
     Dates: start: 2018
  4. LEFLUNOMIDE. [Concomitant]
     Active Substance: LEFLUNOMIDE
     Route: 065
     Dates: start: 2018, end: 2018
  5. DEPO-MEDROL [Concomitant]
     Active Substance: METHYLPREDNISOLONE ACETATE
     Dosage: IN TO BUTTOCK ONCE
     Route: 030
     Dates: start: 20181018, end: 20181018
  6. XELJANZ [Concomitant]
     Active Substance: TOFACITINIB CITRATE
     Indication: RHEUMATOID ARTHRITIS
     Route: 048
     Dates: start: 20181018
  7. ARAVA [Concomitant]
     Active Substance: LEFLUNOMIDE
     Route: 048
  8. SYNTHROID [Concomitant]
     Active Substance: LEVOTHYROXINE SODIUM
     Route: 048
     Dates: end: 2018
  9. METHOTREXATE (TRADE NAME UNKNOWN) [Suspect]
     Active Substance: METHOTREXATE
     Dosage: 2.5 TABS X 6
     Route: 048
     Dates: start: 20181112
  10. TIAZAC [Concomitant]
     Active Substance: DILTIAZEM HYDROCHLORIDE
     Route: 048
  11. ADVAIR UNSPEC [Concomitant]
     Dosage: 500-50 MCG/DOSE, 1 PUFF TWICE A DAY
     Route: 055
  12. NOVO-FOLACID [Concomitant]
     Dosage: EXCEPT ON DAY OF METHOTREXATE
     Route: 048
  13. LIPITOR [Concomitant]
     Active Substance: ATORVASTATIN CALCIUM
     Route: 048
  14. AVAPRO [Concomitant]
     Active Substance: IRBESARTAN
     Dosage: PM NIGHT
     Route: 048
  15. SYNTHROID [Concomitant]
     Active Substance: LEVOTHYROXINE SODIUM
     Route: 048
     Dates: start: 2018

REACTIONS (12)
  - Anaemia [Unknown]
  - Drug ineffective [Unknown]
  - Sjogren^s syndrome [Unknown]
  - Enthesopathy [Unknown]
  - Hypothyroidism [Unknown]
  - Hypertension [Recovering/Resolving]
  - Rheumatoid arthritis [Unknown]
  - Joint space narrowing [Unknown]
  - Seizure [Unknown]
  - Osteopenia [Unknown]
  - Foot deformity [Unknown]
  - Drug intolerance [Unknown]
